FAERS Safety Report 5007128-6 (Version None)
Quarter: 2006Q2

REPORT INFORMATION
  Report Type: 
  Country: None (occurrence: None)
  Receive Date: 20060519
  Receipt Date: 20060328
  Transmission Date: 20061013
  Serious: Yes (Hospitalization)
  Sender: FDA-Public Use
  Company Number: ES-ABBOTT-06P-144-0329460-00

PATIENT
  Sex: Male
  Weight: 82 kg

DRUGS (4)
  1. HUMIRA [Suspect]
     Indication: RHEUMATOID ARTHRITIS
     Route: 058
     Dates: start: 20040223, end: 20051201
  2. CARTEOLOL HCL [Concomitant]
     Indication: PROPHYLAXIS
     Dates: start: 19990101
  3. CARTEOLOL HCL [Concomitant]
     Indication: GLAUCOMA
  4. COMMERCIAL HUMIRA [Concomitant]
     Indication: RHEUMATOID ARTHRITIS
     Route: 058
     Dates: start: 20031014

REACTIONS (1)
  - PROSTATITIS [None]
